FAERS Safety Report 5900860-9 (Version None)
Quarter: 2008Q3

REPORT INFORMATION
  Report Type: 
  Country: None (occurrence: None)
  Receive Date: 20080829
  Receipt Date: 20080916
  Transmission Date: 20090109
  Serious: Yes (Hospitalization, Other)
  Sender: FDA-Public Use
  Company Number: CFNT-284

PATIENT
  Sex: Female

DRUGS (1)
  1. GIASION FILM COATED TABLET (CEFDITOREN PIVOXIL) [Suspect]

REACTIONS (3)
  - GASTROINTESTINAL DISORDER [None]
  - RENAL FAILURE [None]
  - RHABDOMYOLYSIS [None]
